FAERS Safety Report 15175183 (Version 1)
Quarter: 2018Q3

REPORT INFORMATION
  Report Type: Spontaneous
  Country: PT (occurrence: PT)
  Receive Date: 20180720
  Receipt Date: 20180720
  Transmission Date: 20181010
  Serious: Yes (Other)
  Sender: FDA-Public Use
  Company Number: PHHY2018PT052229

PATIENT
  Age: 33 Year
  Sex: Female

DRUGS (4)
  1. PROFENID [Concomitant]
     Active Substance: KETOPROFEN
     Indication: TENDONITIS
     Dosage: 100 MG, QD
     Route: 030
     Dates: start: 20161130
  2. AIRTAL [Concomitant]
     Active Substance: ACECLOFENAC
     Indication: TENDONITIS
     Dosage: 100 MG, QD
     Route: 048
     Dates: start: 20161130
  3. THIOCOLCHICOSIDE [Concomitant]
     Active Substance: THIOCOLCHICOSIDE
     Indication: TENDONITIS
     Dosage: 4 MG, QD
     Route: 030
     Dates: start: 20161130
  4. DICLOFENAC [Suspect]
     Active Substance: DICLOFENAC
     Indication: TENDONITIS
     Dosage: 100 MG, QD
     Route: 048
     Dates: start: 20161205, end: 20161205

REACTIONS (3)
  - Dyspnoea [Recovered/Resolved]
  - Cough [Recovered/Resolved]
  - Angioedema [Recovered/Resolved]

NARRATIVE: CASE EVENT DATE: 20161205
